FAERS Safety Report 23514658 (Version 2)
Quarter: 2024Q1

REPORT INFORMATION
  Report Type: Spontaneous
  Country: US (occurrence: US)
  Receive Date: 20240212
  Receipt Date: 20240313
  Transmission Date: 20240409
  Serious: Yes (Other)
  Sender: FDA-Public Use
  Company Number: US-PFIZER INC-202400037494

PATIENT
  Age: 57 Year
  Sex: Female
  Weight: 58.06 kg

DRUGS (3)
  1. OXBRYTA [Suspect]
     Active Substance: VOXELOTOR
     Indication: Sickle cell anaemia
     Dosage: UNK
  2. OXBRYTA [Suspect]
     Active Substance: VOXELOTOR
     Indication: Sickle cell disease
  3. HYDROXYUREA [Concomitant]
     Active Substance: HYDROXYUREA
     Dosage: UNK

REACTIONS (6)
  - Visual impairment [Unknown]
  - Lymphadenopathy [Unknown]
  - Chest pain [Unknown]
  - Musculoskeletal pain [Unknown]
  - Chest discomfort [Recovered/Resolved]
  - Illness [Unknown]
